FAERS Safety Report 4502603-2 (Version None)
Quarter: 2004Q4

REPORT INFORMATION
  Report Type: 
  Country: None (occurrence: None)
  Receive Date: 20041110
  Receipt Date: 20041105
  Transmission Date: 20050328
  Serious: Yes (Hospitalization)
  Sender: FDA-Public Use
  Company Number: D01200404263

PATIENT
  Age: 35 Year
  Sex: Male

DRUGS (4)
  1. OXALIPLATIN - SOLUTION - 85 MG/M2 [Suspect]
     Indication: COLORECTAL CANCER METASTATIC
     Dosage: 85 MG/M2 Q2W
     Dates: start: 20040719, end: 20040719
  2. FLUOROURACIL [Suspect]
     Dosage: 400 MG/M2 AS IV BOLUS THEN 600 MG/M2 AS 22 HOURS CONTINUOUS INFUSION D1-D2, Q2W
     Route: 042
     Dates: start: 20040719, end: 20040720
  3. (SR57746 OR PLACEBO) - CAPSULES - 1 MG [Suspect]
     Indication: COLORECTAL CANCER METASTATIC
     Dosage: 1 MG QD
     Dates: start: 20040421, end: 20040807
  4. (LEUCOVORIN) - SOLUTION - 200 MG/M2 [Suspect]
     Dosage: 200 MG/M2 AS 2 HOURS INFUSION ON D1-D2 Q2W
     Dates: start: 20040719, end: 20040720

REACTIONS (5)
  - DIARRHOEA [None]
  - FATIGUE [None]
  - GASTROINTESTINAL DISORDER [None]
  - LABORATORY TEST ABNORMAL [None]
  - NEUTROPENIA [None]
